FAERS Safety Report 5127565-9 (Version None)
Quarter: 2006Q4

REPORT INFORMATION
  Report Type: 
  Country: None (occurrence: None)
  Receive Date: 20061010
  Receipt Date: 20060928
  Transmission Date: 20070319
  Serious: Yes (Other)
  Sender: FDA-Public Use
  Company Number: 2006109535

PATIENT
  Age: 79 Year
  Sex: Male

DRUGS (3)
  1. CEFPODOXIME PROXETIL [Suspect]
     Indication: PYREXIA
     Dosage: 300 MG ORAL
     Route: 048
     Dates: start: 20060829, end: 20060901
  2. AMEZINIUM METILSULFATE (AMEZINIUM METILSULFATE) [Suspect]
     Indication: BLOOD PRESSURE DECREASED
     Dosage: (3 IN 1 WK) ORAL
     Route: 048
     Dates: start: 20060710, end: 20060904
  3. DROXIDOPA (DROXIDOPA) [Suspect]
     Indication: BLOOD PRESSURE DECREASED
     Dosage: (3 IN 1 WK) ORAL
     Route: 048
     Dates: start: 20060720, end: 20060904

REACTIONS (4)
  - HEPATIC ENCEPHALOPATHY [None]
  - HEPATIC FAILURE [None]
  - HEPATITIS ACUTE [None]
  - HEPATITIS E [None]
